FAERS Safety Report 10547691 (Version 1)
Quarter: 2014Q4

REPORT INFORMATION
  Report Type: Spontaneous
  Country: US (occurrence: None)
  Receive Date: 20141015
  Receipt Date: 20141015
  Transmission Date: 20150529
  Serious: No
  Sender: FDA-Public Use
  Company Number: 2014US003636

PATIENT
  Age: 72 Year
  Sex: Female

DRUGS (7)
  1. CALCIUM CITRATE (CALCIUM CITRATE) [Concomitant]
  2. MIRALAX (MACROGOL) [Concomitant]
  3. ICLUSIG [Suspect]
     Active Substance: PONATINIB
     Indication: ACUTE LYMPHOCYTIC LEUKAEMIA
     Route: 048
  4. FLONASE [Concomitant]
     Active Substance: FLUTICASONE PROPIONATE
  5. ASPIRIN (ASPIRIN) [Concomitant]
     Active Substance: ASPIRIN
  6. EVISTA [Concomitant]
     Active Substance: RALOXIFENE HYDROCHLORIDE
  7. SYNTHROID [Concomitant]
     Active Substance: LEVOTHYROXINE SODIUM

REACTIONS (1)
  - Vomiting [None]
